FAERS Safety Report 8471336-2 (Version None)
Quarter: 2012Q2

REPORT INFORMATION
  Report Type: 
  Country: None (occurrence: None)
  Receive Date: 20120627
  Receipt Date: 20120620
  Transmission Date: 20120825
  Serious: Yes (Other)
  Sender: FDA-Public Use
  Company Number: DE-B.I. PHARMACEUTICALS,INC./RIDGEFIELD-2012-DE-01508DE

PATIENT
  Sex: Male

DRUGS (3)
  1. EBASTINE [Concomitant]
     Indication: RHINITIS
  2. FLUTICASONE PROPIONATE [Concomitant]
  3. MICARDIS [Suspect]
     Indication: HYPERTENSION
     Dosage: 80 MG

REACTIONS (7)
  - PLATELET COUNT DECREASED [None]
  - TOXICITY TO VARIOUS AGENTS [None]
  - HAEMATOCRIT DECREASED [None]
  - BONE MARROW FAILURE [None]
  - HAEMOGLOBIN DECREASED [None]
  - WHITE BLOOD CELL COUNT DECREASED [None]
  - GLYCOSYLATED HAEMOGLOBIN INCREASED [None]
